FAERS Safety Report 7689618-0 (Version None)
Quarter: 2011Q3

REPORT INFORMATION
  Report Type: 
  Country: None (occurrence: None)
  Receive Date: 20110817
  Receipt Date: 20110803
  Transmission Date: 20111222
  Serious: Yes (Other)
  Sender: FDA-Public Use
  Company Number: US-BAYER-2011-069172

PATIENT
  Age: 85 Year
  Sex: Female
  Weight: 68 kg

DRUGS (2)
  1. ASPIRIN [Suspect]
     Dosage: UNK
     Route: 048
  2. ASPIRIN [Suspect]
     Indication: ISCHAEMIC HEART DISEASE PROPHYLAXIS
     Dosage: 1 DF, QD
     Route: 048
     Dates: start: 20110101

REACTIONS (5)
  - RASH MACULAR [None]
  - GASTRIC HAEMORRHAGE [None]
  - FAECES DISCOLOURED [None]
  - DIZZINESS [None]
  - HEADACHE [None]
